FAERS Safety Report 5405668-9 (Version None)
Quarter: 2007Q3

REPORT INFORMATION
  Report Type: 
  Country: None (occurrence: None)
  Receive Date: 20070806
  Receipt Date: 20070725
  Transmission Date: 20080115
  Serious: Yes (Other)
  Sender: FDA-Public Use
  Company Number: PHBS2007JP12800

PATIENT
  Age: 67 Year
  Sex: Female

DRUGS (9)
  1. MAPROTILINE HYDROCHLORIDE [Suspect]
     Indication: DEPRESSION
     Route: 048
  2. MAPROTILINE HYDROCHLORIDE [Suspect]
     Dosage: 100 MG/D
     Route: 048
  3. MAPROTILINE HYDROCHLORIDE [Suspect]
     Dosage: 50 MG/D
     Route: 048
  4. GLIMEPIRIDE [Concomitant]
     Dosage: 0.5 MG/D
     Route: 048
  5. PAROXETINE HYDROCHLORIDE [Concomitant]
     Dosage: 30 MG/D
  6. NITRAZEPAM [Concomitant]
     Dosage: 20 MG/D
  7. QUAZEPAM [Concomitant]
     Dosage: 15 MG/D
  8. BIPERIDEN HYDROCHLORIDE TAB [Concomitant]
     Dosage: 2 MG/D
  9. BIPERIDEN HYDROCHLORIDE TAB [Concomitant]
     Dosage: 4 MG/D

REACTIONS (1)
  - EXTRAPYRAMIDAL DISORDER [None]
